FAERS Safety Report 9692926 (Version 1)
Quarter: 2013Q4

REPORT INFORMATION
  Report Type: Spontaneous
  Country: US (occurrence: US)
  Receive Date: 20131118
  Receipt Date: 20131118
  Transmission Date: 20140711
  Serious: No
  Sender: FDA-Public Use
  Company Number: US-GLAXOSMITHKLINE-A1010628A

PATIENT
  Sex: Female

DRUGS (2)
  1. COREG CR [Suspect]
     Dosage: 80MG PER DAY
     Route: 048
  2. MEDICATION FOR HIGH BLOOD PRESSURE [Concomitant]

REACTIONS (1)
  - Nocturia [Unknown]
